FAERS Safety Report 13674930 (Version 4)
Quarter: 2019Q1

REPORT INFORMATION
  Report Type: Spontaneous
  Country: FR (occurrence: FR)
  Receive Date: 20170621
  Receipt Date: 20190122
  Transmission Date: 20190417
  Serious: Yes (Other)
  Sender: FDA-Public Use
  Company Number: PHHY2017FR089119

PATIENT
  Age: 71 Year
  Sex: Male
  Weight: 90 kg

DRUGS (4)
  1. TAFINLAR [Suspect]
     Active Substance: DABRAFENIB MESYLATE
     Indication: METASTATIC MALIGNANT MELANOMA
     Dosage: 150 MG, BID
     Route: 048
     Dates: start: 20150428
  2. MEKINIST [Suspect]
     Active Substance: TRAMETINIB DIMETHYL SULFOXIDE
     Dosage: 1.5 MG, QD
     Route: 048
     Dates: start: 20170629
  3. VERATRAN [Concomitant]
     Active Substance: CLOTIAZEPAM
     Indication: PRODUCT USED FOR UNKNOWN INDICATION
     Dosage: 5 MG, UNK
     Route: 048
  4. MEKINIST [Suspect]
     Active Substance: TRAMETINIB DIMETHYL SULFOXIDE
     Indication: METASTATIC MALIGNANT MELANOMA
     Dosage: 2 MG, UNK
     Route: 048
     Dates: start: 20150428, end: 20170509

REACTIONS (10)
  - CSF pressure increased [Unknown]
  - Photophobia [Not Recovered/Not Resolved]
  - Visual impairment [Unknown]
  - Vision blurred [Recovering/Resolving]
  - Intracranial pressure increased [Recovering/Resolving]
  - Visual field defect [Unknown]
  - Papilloedema [Recovered/Resolved with Sequelae]
  - Blindness [Not Recovered/Not Resolved]
  - Accommodation disorder [Not Recovered/Not Resolved]
  - Optic nerve injury [Not Recovered/Not Resolved]

NARRATIVE: CASE EVENT DATE: 201705
